FAERS Safety Report 5892955-3 (Version None)
Quarter: 2008Q3

REPORT INFORMATION
  Report Type: 
  Country: None (occurrence: None)
  Receive Date: 20080922
  Receipt Date: 20080922
  Transmission Date: 20090109
  Serious: Yes (Hospitalization)
  Sender: FDA-Public Use
  Company Number: None

PATIENT
  Age: 90 Year
  Sex: Female
  Weight: 61.2356 kg

DRUGS (1)
  1. COMBIGAN [Suspect]
     Indication: GLAUCOMA
     Dosage: 1 DROP EACH EYE TWICE DAILY OPHTHALMIC
     Route: 047
     Dates: start: 20080813, end: 20080813

REACTIONS (5)
  - ANKLE FRACTURE [None]
  - EYE IRRITATION [None]
  - EYE PAIN [None]
  - FALL [None]
  - LOSS OF CONSCIOUSNESS [None]
